FAERS Safety Report 4671321-2 (Version None)
Quarter: 2005Q2

REPORT INFORMATION
  Report Type: 
  Country: None (occurrence: None)
  Receive Date: 20050523
  Receipt Date: 20050511
  Transmission Date: 20051028
  Serious: Yes (Other)
  Sender: FDA-Public Use
  Company Number: 2005-04-1722

PATIENT
  Age: 2 Year
  Sex: Female

DRUGS (2)
  1. AERIUS (DESLORATADINE) SYRUP [Suspect]
     Indication: RHINITIS ALLERGIC
     Dosage: 2.5 ML QD ORAL
     Route: 048
     Dates: start: 20050401, end: 20050410
  2. TRIMETHOPRIM [Concomitant]

REACTIONS (4)
  - DIARRHOEA [None]
  - DRUG INTOLERANCE [None]
  - NAUSEA [None]
  - VOMITING [None]
